FAERS Safety Report 9948842 (Version 2)
Quarter: 2014Q2

REPORT INFORMATION
  Report Type: Spontaneous
  Country: US (occurrence: US)
  Receive Date: 20140304
  Receipt Date: 20140505
  Transmission Date: 20141212
  Serious: Yes (Hospitalization)
  Sender: FDA-Public Use
  Company Number: US-BIOGENIDEC-2014BI017917

PATIENT
  Age: 57 Year
  Sex: Female

DRUGS (4)
  1. TECFIDERA [Suspect]
     Indication: PRODUCT USED FOR UNKNOWN INDICATION
     Dates: start: 201307, end: 201309
  2. TECFIDERA [Suspect]
     Indication: PRODUCT USED FOR UNKNOWN INDICATION
     Dates: start: 20130924, end: 20131024
  3. TECFIDERA [Suspect]
     Indication: PRODUCT USED FOR UNKNOWN INDICATION
     Dates: start: 20131201
  4. MELOXICAM [Concomitant]
     Indication: ARTHRITIS
     Dates: start: 20140121, end: 20140216

REACTIONS (5)
  - Neck surgery [Unknown]
  - Contusion [Recovered/Resolved]
  - Exostosis [Unknown]
  - Blood test abnormal [Unknown]
  - Factor V Leiden mutation [Unknown]
